FAERS Safety Report 21114156 (Version 1)
Quarter: 2022Q3

REPORT INFORMATION
  Report Type: Spontaneous
  Country: US (occurrence: US)
  Receive Date: 20220721
  Receipt Date: 20220721
  Transmission Date: 20221026
  Serious: Yes (Other)
  Sender: FDA-Public Use
  Company Number: US-BRISTOL-MYERS SQUIBB COMPANY-2022-071846

PATIENT
  Age: 65 Year
  Sex: Male
  Weight: 145.15 kg

DRUGS (1)
  1. LENALIDOMIDE [Suspect]
     Active Substance: LENALIDOMIDE
     Indication: Follicular lymphoma
     Dosage: D 1-21 Q 28 DAYS
     Route: 048
     Dates: start: 20211115

REACTIONS (3)
  - Arthralgia [Unknown]
  - Hypercalcaemia [Unknown]
  - COVID-19 [Unknown]
